FAERS Safety Report 8572719-2 (Version None)
Quarter: 2012Q3

REPORT INFORMATION
  Report Type: 
  Country: None (occurrence: None)
  Receive Date: 20120806
  Receipt Date: 20120731
  Transmission Date: 20120928
  Serious: Yes (Other)
  Sender: FDA-Public Use
  Company Number: US-PFIZER INC-2012186115

PATIENT
  Age: 74 Year
  Sex: Female
  Weight: 44 kg

DRUGS (18)
  1. MYCOPHENOLATE MOFETIL [Concomitant]
     Indication: TRANSPLANT REJECTION
     Dosage: 500 MG, 2X/DAY
  2. ASPIRIN [Concomitant]
     Dosage: 81 MG, UNK
  3. MAGNESIUM [Concomitant]
     Dosage: UNK
  4. BENADRYL [Concomitant]
     Indication: SLEEP DISORDER
     Dosage: 25 MG, UNK
  5. VITAMIN D [Concomitant]
     Dosage: UNK
  6. VFEND [Suspect]
     Indication: ASPERGILLOSIS
     Dosage: 200 MG, 2X/DAY
     Route: 048
     Dates: start: 20111201
  7. ACYCLOVIR [Concomitant]
     Dosage: UNK
  8. VFEND [Suspect]
     Indication: PULMONARY FIBROSIS
  9. TRAMADOL HCL [Suspect]
     Indication: PAIN
     Dosage: 25 MG, 1X/DAY
     Route: 048
     Dates: start: 20120703
  10. TACROLIMUS [Concomitant]
     Dosage: 0.5 MG, UNK
  11. PREDNISONE [Concomitant]
     Dosage: 5 MG, 1X/DAY
  12. PANTOPRAZOLE [Concomitant]
     Indication: GASTRITIS
     Dosage: 40 MG, 1X/DAY
  13. AZITHROMYCIN [Concomitant]
     Dosage: 250 MG, EVERY 3 WEEKS
  14. SULFAMETHOXAZOLE [Concomitant]
     Dosage: ONE TABLET, EVERY THREE WEEKS
  15. LEVOTHYROXINE [Concomitant]
     Indication: HYPOTHYROIDISM
     Dosage: 75 UG, 1X/DAY
  16. LOVASTATIN [Concomitant]
     Indication: BLOOD CHOLESTEROL INCREASED
     Dosage: 20 MG, 1X/DAY
  17. AMOXICILLIN [Concomitant]
     Dosage: HALF TABLET, UNK
  18. MULTI-VITAMINS [Concomitant]
     Dosage: UNK

REACTIONS (4)
  - HALLUCINATION [None]
  - RIB FRACTURE [None]
  - PAIN [None]
  - VISUAL IMPAIRMENT [None]
